FAERS Safety Report 8860480 (Version 6)
Quarter: 2013Q1

REPORT INFORMATION
  Report Type: Spontaneous
  Country: US (occurrence: US)
  Receive Date: 20121025
  Receipt Date: 20130130
  Transmission Date: 20140127
  Serious: No
  Sender: FDA-Public Use
  Company Number: US-JNJFOC-20121010842

PATIENT
  Sex: Female
  Weight: 9.07 kg

DRUGS (2)
  1. CHILDREN^S TYLENOL [Suspect]
     Indication: TOOTHACHE
     Dosage: HALF DOSE, ONCE A DAY WHEN REQUIRED FOR TEETHING.
     Route: 048
     Dates: start: 201204, end: 20121007
  2. CHILDREN^S TYLENOL [Suspect]
     Indication: TEETHING
     Dosage: HALF DOSE, ONCE A DAY WHEN REQUIRED FOR TEETHING.
     Route: 048
     Dates: start: 201204, end: 20121007

REACTIONS (1)
  - Tremor [Recovered/Resolved]
